FAERS Safety Report 9275559 (Version 1)
Quarter: 2013Q2

REPORT INFORMATION
  Report Type: Spontaneous
  Country: FR (occurrence: FR)
  Receive Date: 20130507
  Receipt Date: 20130507
  Transmission Date: 20140414
  Serious: Yes (Hospitalization)
  Sender: FDA-Public Use
  Company Number: FR-JNJFOC-20130417985

PATIENT
  Age: 16 Year
  Sex: Female

DRUGS (9)
  1. CONTRAMAL [Suspect]
     Indication: PAIN
     Route: 042
     Dates: start: 20130124, end: 20130124
  2. SUFENTANIL [Suspect]
     Indication: GENERAL ANAESTHESIA
     Route: 042
     Dates: start: 20130124, end: 20130124
  3. DIPRIVAN [Suspect]
     Indication: GENERAL ANAESTHESIA
     Route: 042
     Dates: start: 20130124, end: 20130124
  4. TRACRIUM [Suspect]
     Indication: GENERAL ANAESTHESIA
     Route: 042
     Dates: start: 20130124, end: 20130124
  5. ZOPHREN [Suspect]
     Indication: PROPHYLAXIS OF NAUSEA AND VOMITING
     Route: 042
     Dates: start: 20130124, end: 20130124
  6. DEXAMETHASONE [Suspect]
     Indication: PRODUCT USED FOR UNKNOWN INDICATION
     Route: 042
     Dates: start: 20130124, end: 20130124
  7. XYLOCAINE [Suspect]
     Indication: GENERAL ANAESTHESIA
     Route: 042
     Dates: start: 20130124, end: 20130124
  8. PERFALGAN [Suspect]
     Indication: PAIN
     Route: 042
     Dates: start: 20130124, end: 20130124
  9. KETAMINE [Suspect]
     Indication: GENERAL ANAESTHESIA
     Route: 042
     Dates: start: 20130124, end: 20130124

REACTIONS (2)
  - Hypersensitivity [Recovered/Resolved]
  - Generalised erythema [Recovered/Resolved]
